FAERS Safety Report 10181856 (Version 1)
Quarter: 2014Q2

REPORT INFORMATION
  Report Type: Report from Study
  Country: DK (occurrence: DK)
  Receive Date: 20140519
  Receipt Date: 20140519
  Transmission Date: 20141212
  Serious: Yes (Other)
  Sender: FDA-Public Use
  Company Number: DK-BAXTER-2014BAX025248

PATIENT
  Sex: 0

DRUGS (1)
  1. TISSEEL [Suspect]
     Indication: UMBILICAL HERNIA REPAIR
     Route: 065

REACTIONS (1)
  - Hernia [Unknown]
